FAERS Safety Report 12781248 (Version 11)
Quarter: 2018Q2

REPORT INFORMATION
  Report Type: Report from Study
  Country: BR (occurrence: BR)
  Receive Date: 20160926
  Receipt Date: 20180417
  Transmission Date: 20180711
  Serious: Yes (Life-Threatening, Hospitalization, Other)
  Sender: FDA-Public Use
  Company Number: PHHY2016BR112792

PATIENT
  Sex: Female
  Weight: 50 kg

DRUGS (11)
  1. EXJADE [Suspect]
     Active Substance: DEFERASIROX
     Dosage: ONE AND A HALF TABLET OF 500 MG, QD
     Route: 048
  2. GABAPENTIN. [Suspect]
     Active Substance: GABAPENTIN
     Indication: PRODUCT USED FOR UNKNOWN INDICATION
     Route: 065
  3. EXJADE [Suspect]
     Active Substance: DEFERASIROX
     Dosage: 20 MG/KG, QD (2 TABLETS OF 500 MG ONCE DAILY)
     Route: 048
     Dates: start: 2010, end: 2017
  4. HYDREA [Concomitant]
     Active Substance: HYDROXYUREA
     Indication: SICKLE CELL ANAEMIA
     Dosage: 2 DF, QD
     Route: 048
     Dates: start: 2003
  5. EXJADE [Suspect]
     Active Substance: DEFERASIROX
     Dosage: 1000 MG, QD
     Route: 048
  6. EXJADE [Suspect]
     Active Substance: DEFERASIROX
     Dosage: 2 DF, QD
     Route: 048
  7. FLUOXETINA [Concomitant]
     Active Substance: FLUOXETINE HYDROCHLORIDE
     Indication: PRODUCT USED FOR UNKNOWN INDICATION
     Dosage: UNK
     Route: 065
  8. AMITRIPTILINA [Concomitant]
     Active Substance: AMITRIPTYLINE HYDROCHLORIDE
     Indication: PRODUCT USED FOR UNKNOWN INDICATION
     Dosage: UNK
     Route: 065
  9. FOLIC ACID. [Concomitant]
     Active Substance: FOLIC ACID
     Indication: SICKLE CELL ANAEMIA
     Dosage: 1 TABLET ON MONDAY, WEDNESDAY AND FRIDAY
     Route: 048
  10. HYDREA [Concomitant]
     Active Substance: HYDROXYUREA
     Dosage: 1 DF, QD
     Route: 065
  11. EXJADE [Suspect]
     Active Substance: DEFERASIROX
     Indication: SICKLE CELL ANAEMIA
     Dosage: 2 DF, QD(2 TABLETS IN A DAY)
     Route: 048
     Dates: start: 2003

REACTIONS (61)
  - Feeling abnormal [Recovering/Resolving]
  - Arthritis [Unknown]
  - Pancreatitis [Not Recovered/Not Resolved]
  - Pallor [Unknown]
  - Exercise tolerance decreased [Unknown]
  - Tremor [Unknown]
  - Pigmentation disorder [Unknown]
  - Hypertension [Unknown]
  - Headache [Unknown]
  - Haematocrit decreased [Unknown]
  - Wrong technique in product usage process [Recovered/Resolved]
  - Cerebrovascular accident [Unknown]
  - Aphasia [Unknown]
  - Vomiting [Unknown]
  - Retinal detachment [Unknown]
  - Nervousness [Unknown]
  - Yellow skin [Unknown]
  - Body height decreased [Unknown]
  - Vital functions abnormal [Unknown]
  - Rhinitis [Unknown]
  - Hypothyroidism [Unknown]
  - Somnolence [Recovering/Resolving]
  - Disease progression [Unknown]
  - Pain in extremity [Unknown]
  - Swelling [Unknown]
  - Osteoarthritis [Not Recovered/Not Resolved]
  - Fibromyalgia [Unknown]
  - Serum ferritin increased [Unknown]
  - Hypokinesia [Unknown]
  - Ischaemic stroke [Unknown]
  - Peripheral swelling [Recovering/Resolving]
  - Visual impairment [Unknown]
  - Ulcer [Unknown]
  - Vitamin B complex deficiency [Unknown]
  - Back pain [Not Recovered/Not Resolved]
  - Weight decreased [Unknown]
  - Limb asymmetry [Unknown]
  - Cardiac disorder [Unknown]
  - Phlebitis [Unknown]
  - Depression [Unknown]
  - Intracardiac thrombus [Unknown]
  - Gait inability [Unknown]
  - Diabetes mellitus [Not Recovered/Not Resolved]
  - Gait disturbance [Unknown]
  - Decreased appetite [Unknown]
  - Malaise [Unknown]
  - Fatigue [Unknown]
  - Renal disorder [Unknown]
  - Eye colour change [Unknown]
  - Osteoporosis [Unknown]
  - Underweight [Unknown]
  - Influenza [Unknown]
  - Eating disorder [Not Recovered/Not Resolved]
  - Sneezing [Unknown]
  - Dry skin [Not Recovered/Not Resolved]
  - Arthralgia [Not Recovered/Not Resolved]
  - Sickle cell anaemia [Unknown]
  - Arrhythmia [Unknown]
  - Pain [Unknown]
  - Asthenia [Unknown]
  - Abdominal distension [Recovering/Resolving]

NARRATIVE: CASE EVENT DATE: 2016
